FAERS Safety Report 19757463 (Version 1)
Quarter: 2021Q3

REPORT INFORMATION
  Report Type: Spontaneous
  Country: US (occurrence: US)
  Receive Date: 20210827
  Receipt Date: 20210827
  Transmission Date: 20211014
  Serious: Yes (Other)
  Sender: FDA-Public Use
  Company Number: US-TAKEDA-2021TUS052538

PATIENT

DRUGS (1)
  1. PREVACID [Suspect]
     Active Substance: LANSOPRAZOLE
     Indication: PRODUCT USED FOR UNKNOWN INDICATION
     Dosage: UNK
     Route: 065

REACTIONS (8)
  - Disturbance in attention [Unknown]
  - Dyspepsia [Unknown]
  - Eye disorder [Unknown]
  - Memory impairment [Unknown]
  - Systemic lupus erythematosus [Unknown]
  - Fibromyalgia [Unknown]
  - Dyspnoea [Unknown]
  - Pruritus [Unknown]
